FAERS Safety Report 11066912 (Version 2)
Quarter: 2015Q2

REPORT INFORMATION
  Report Type: Spontaneous
  Country: US (occurrence: US)
  Receive Date: 20150425
  Receipt Date: 20150525
  Transmission Date: 20150821
  Serious: No
  Sender: FDA-Public Use
  Company Number: US-JNJFOC-20130711829

PATIENT
  Age: 56 Year
  Sex: Female
  Weight: 79.38 kg

DRUGS (6)
  1. COLCRYS [Concomitant]
     Active Substance: COLCHICINE
     Indication: VASCULITIS
     Route: 048
     Dates: start: 201211
  2. SIMPONI [Suspect]
     Active Substance: GOLIMUMAB
     Indication: VASCULITIS
     Route: 058
     Dates: start: 201212
  3. METHOTREXATE [Concomitant]
     Active Substance: METHOTREXATE
     Indication: ARTHRITIS
     Route: 048
     Dates: start: 2007
  4. SIMPONI [Suspect]
     Active Substance: GOLIMUMAB
     Indication: VASCULITIS
     Route: 058
     Dates: start: 20130717
  5. SIMPONI [Suspect]
     Active Substance: GOLIMUMAB
     Indication: RHEUMATOID ARTHRITIS
     Route: 058
     Dates: start: 20130717
  6. SIMPONI [Suspect]
     Active Substance: GOLIMUMAB
     Indication: RHEUMATOID ARTHRITIS
     Route: 058
     Dates: start: 201212

REACTIONS (2)
  - Drug dose omission [Not Recovered/Not Resolved]
  - Device failure [Recovered/Resolved]

NARRATIVE: CASE EVENT DATE: 20130717
